FAERS Safety Report 6180424-5 (Version None)
Quarter: 2009Q2

REPORT INFORMATION
  Report Type: 
  Country: None (occurrence: None)
  Receive Date: 20090506
  Receipt Date: 20090428
  Transmission Date: 20091009
  Serious: Yes (Other)
  Sender: FDA-Public Use
  Company Number: US-JNJFOC-20090500090

PATIENT
  Sex: Female
  Weight: 61.24 kg

DRUGS (6)
  1. DURAGESIC-100 [Suspect]
     Indication: GASTROINTESTINAL PAIN
     Route: 062
  2. DURAGESIC-100 [Suspect]
     Indication: ABDOMINAL PAIN UPPER
     Route: 062
  3. DIAZEPAM [Concomitant]
     Indication: NEUROPATHY PERIPHERAL
     Route: 048
  4. POTASSIUM CHLORIDE [Concomitant]
     Indication: MINERAL SUPPLEMENTATION
     Route: 048
  5. MULTIPLE VITAMIN [Concomitant]
     Indication: VITAMIN SUPPLEMENTATION
     Route: 048
  6. SLEEPING DRUG [Concomitant]
     Indication: SLEEP DISORDER
     Route: 048

REACTIONS (5)
  - ASTHENIA [None]
  - DEHYDRATION [None]
  - DIARRHOEA [None]
  - DRUG INEFFECTIVE [None]
  - WEIGHT DECREASED [None]
